FAERS Safety Report 4677484-7 (Version None)
Quarter: 2005Q2

REPORT INFORMATION
  Report Type: 
  Country: None (occurrence: None)
  Receive Date: 20050531
  Receipt Date: 20050428
  Transmission Date: 20051028
  Serious: Yes (Hospitalization, Other)
  Sender: FDA-Public Use
  Company Number: US-BRISTOL-MYERS SQUIBB COMPANY-12949863

PATIENT
  Age: 34 Year
  Sex: Female
  Weight: 104 kg

DRUGS (5)
  1. ABILIFY [Suspect]
     Indication: OBSESSIVE-COMPULSIVE DISORDER
     Dates: end: 20050412
  2. LIPITOR [Concomitant]
  3. COZAAR [Concomitant]
  4. ZOLOFT [Concomitant]
  5. BUSPAR [Concomitant]
     Dates: end: 20050412

REACTIONS (3)
  - ACUTE MYELOID LEUKAEMIA [None]
  - CHEST DISCOMFORT [None]
  - NAUSEA [None]
